FAERS Safety Report 19590123 (Version 2)
Quarter: 2022Q3

REPORT INFORMATION
  Report Type: Report from Study
  Country: FR (occurrence: FR)
  Receive Date: 20210721
  Receipt Date: 20220919
  Transmission Date: 20221026
  Serious: Yes (Other)
  Sender: FDA-Public Use
  Company Number: FR-TAKEDA-2021TUS042565

PATIENT
  Age: 35 Year
  Sex: Female

DRUGS (9)
  1. TEDUGLUTIDE [Suspect]
     Active Substance: TEDUGLUTIDE
     Indication: Short-bowel syndrome
     Dosage: 3.3 MILLIGRAM (0.05 MG/KG), 7 DOSES PER WEEK
     Route: 042
     Dates: start: 20160419, end: 20160607
  2. TEDUGLUTIDE [Suspect]
     Active Substance: TEDUGLUTIDE
     Indication: Short-bowel syndrome
     Dosage: 3.3 MILLIGRAM (0.05 MG/KG), 7 DOSES PER WEEK
     Route: 042
     Dates: start: 20160419, end: 20160607
  3. TEDUGLUTIDE [Suspect]
     Active Substance: TEDUGLUTIDE
     Indication: Short-bowel syndrome
     Dosage: 3.3 MILLIGRAM (0.05 MG/KG), 7 DOSES PER WEEK
     Route: 042
     Dates: start: 20160419, end: 20160607
  4. TEDUGLUTIDE [Suspect]
     Active Substance: TEDUGLUTIDE
     Indication: Short-bowel syndrome
     Dosage: 3.3 MILLIGRAM (0.05 MG/KG), 7 DOSES PER WEEK
     Route: 042
     Dates: start: 20160419, end: 20160607
  5. PHLOROGLUCINOL [Concomitant]
     Active Substance: PHLOROGLUCINOL
     Indication: Abdominal pain
     Dosage: 160 MILLIGRAM, TID
     Route: 048
     Dates: start: 20200420, end: 20200424
  6. URSODIOL [Concomitant]
     Active Substance: URSODIOL
     Indication: Hepatic steatosis
     Dosage: 200 MILLIGRAM, BID
     Route: 048
     Dates: start: 20110816, end: 202005
  7. ZINC GLUCONATE [Concomitant]
     Active Substance: ZINC GLUCONATE
     Indication: Zinc deficiency
     Dosage: 10 MILLIGRAM, QD
     Route: 048
     Dates: start: 20170531
  8. ESOMEPRAZOLE [Concomitant]
     Active Substance: ESOMEPRAZOLE
     Indication: Short-bowel syndrome
     Dosage: 40 MILLIGRAM, QD
     Route: 048
     Dates: start: 20101115
  9. POLYETHYLENE GLYCOLS [Concomitant]
     Active Substance: POLYETHYLENE GLYCOLS
     Indication: Anal fissure
     Dosage: 10 GRAM, QD
     Route: 048
     Dates: start: 20211206

REACTIONS (3)
  - Hydrosalpinx [Recovered/Resolved]
  - Salpingitis [Recovered/Resolved]
  - Bronchitis [Recovered/Resolved]

NARRATIVE: CASE EVENT DATE: 20160526
